FAERS Safety Report 7652900-7 (Version None)
Quarter: 2011Q3

REPORT INFORMATION
  Report Type: 
  Country: None (occurrence: None)
  Receive Date: 20110803
  Receipt Date: 20110801
  Transmission Date: 20111222
  Serious: Yes (Other)
  Sender: FDA-Public Use
  Company Number: ZA-BAYER-2011-067403

PATIENT
  Age: 51 Year
  Sex: Female

DRUGS (2)
  1. ESTRADERM [Concomitant]
     Indication: HORMONE THERAPY
  2. MIRENA [Suspect]
     Indication: HORMONE THERAPY
     Dosage: 20 ?G, CONT
     Route: 015
     Dates: start: 20100101

REACTIONS (2)
  - BREAST MASS [None]
  - BREAST CANCER FEMALE [None]
